FAERS Safety Report 10655608 (Version 1)
Quarter: 2014Q4

REPORT INFORMATION
  Report Type: Spontaneous
  Country: US (occurrence: None)
  Receive Date: 20141205
  Receipt Date: 20141205
  Transmission Date: 20150529
  Serious: Yes (Hospitalization, Other)
  Sender: FDA-Public Use
  Company Number: USA-2014094213

PATIENT
  Age: 59 Year
  Sex: Male

DRUGS (17)
  1. POMALYST [Suspect]
     Active Substance: POMALIDOMIDE
     Indication: PLASMA CELL MYELOMA
     Dosage: 1 IN 1 D
     Route: 048
     Dates: start: 20140627, end: 2014
  2. POTASSIUM CHLORIDE (POTASSIUM CHLORIDE) [Concomitant]
     Active Substance: POTASSIUM CHLORIDE
  3. SIMVASTATIN (SIMVASTATIN) [Concomitant]
     Active Substance: SIMVASTATIN
  4. DOXAZOSIN [Concomitant]
     Active Substance: DOXAZOSIN\DOXAZOSIN MESYLATE
  5. DEXAMETHASONE (DEXAMETHASONE) [Concomitant]
     Active Substance: DEXAMETHASONE
  6. ONDANSETRON. [Concomitant]
     Active Substance: ONDANSETRON
  7. PROCHLORPERAZINE (PROCHLORPERAZINE) [Concomitant]
     Active Substance: PROCHLORPERAZINE
  8. MORPHINE (MORPHINE) [Concomitant]
  9. COMPAZINE [Concomitant]
     Active Substance: PROCHLORPERAZINE MALEATE
  10. NEURONTIN [Concomitant]
     Active Substance: GABAPENTIN
  11. GABAPENTIN (GABAPENTIN) [Concomitant]
     Active Substance: GABAPENTIN
  12. SINEMET (LEVODOPA, CARBIDOPA) [Concomitant]
  13. TRAMADOL(TRAMADOL) [Concomitant]
     Active Substance: TRAMADOL
  14. ZOFRAN (ONDANSETRON) [Concomitant]
  15. LACTULOSE (LACTULOSE) [Concomitant]
     Active Substance: LACTULOSE
  16. PEPCID (MAGNESIUM CARBONATE, ALUMINIUM HYDROXIDE GEL, DRIED) [Concomitant]
  17. ALBUTEROL (SALBUTAMOL) [Concomitant]
     Active Substance: ALBUTEROL

REACTIONS (5)
  - Neutropenic sepsis [None]
  - Muscular weakness [None]
  - Pneumonia [None]
  - Anaemia [None]
  - Thrombocytopenia [None]

NARRATIVE: CASE EVENT DATE: 2014
